FAERS Safety Report 8584743-4 (Version None)
Quarter: 2012Q3

REPORT INFORMATION
  Report Type: 
  Country: None (occurrence: None)
  Receive Date: 20120810
  Receipt Date: 20120731
  Transmission Date: 20120928
  Serious: Yes (Hospitalization)
  Sender: FDA-Public Use
  Company Number: US-BAYER-2012-079066

PATIENT
  Age: 37 Year
  Sex: Female
  Weight: 114.29 kg

DRUGS (4)
  1. YASMIN [Suspect]
  2. KETOCONAZOLE [Concomitant]
     Dosage: UNK, ONCE DAY
     Dates: start: 20110512
  3. LISINOPRIL [Concomitant]
     Dosage: 20 MG, DAILY
     Dates: start: 20110630
  4. YAZ [Suspect]

REACTIONS (1)
  - PULMONARY EMBOLISM [None]
